FAERS Safety Report 8326139-6 (Version None)
Quarter: 2012Q2

REPORT INFORMATION
  Report Type: 
  Country: None (occurrence: None)
  Receive Date: 20120501
  Receipt Date: 20100614
  Transmission Date: 20120825
  Serious: No
  Sender: FDA-Public Use
  Company Number: US-TEVA-2010003232

PATIENT
  Sex: Female
  Weight: 54.48 kg

DRUGS (4)
  1. TOPAMAX [Concomitant]
     Indication: MOOD SWINGS
  2. NUVIGIL [Suspect]
     Route: 048
     Dates: start: 20100601, end: 20100601
  3. LAMICTAL [Concomitant]
     Indication: MOOD SWINGS
  4. CLONOPIN [Concomitant]

REACTIONS (3)
  - AGGRESSION [None]
  - DRY EYE [None]
  - DYSARTHRIA [None]
